FAERS Safety Report 8089292-8 (Version None)
Quarter: 2012Q1

REPORT INFORMATION
  Report Type: 
  Country: None (occurrence: None)
  Receive Date: 20120128
  Receipt Date: 20110628
  Transmission Date: 20120608
  Serious: No
  Sender: FDA-Public Use
  Company Number: US-ABBOTT-11P-163-0720403-00

PATIENT
  Sex: Female

DRUGS (17)
  1. NEURONTIN [Concomitant]
     Indication: PRODUCT USED FOR UNKNOWN INDICATION
  2. ZYRTEC [Concomitant]
     Indication: PRODUCT USED FOR UNKNOWN INDICATION
  3. DOXEPIN [Concomitant]
     Indication: PRURITUS
     Dosage: QHS
     Route: 048
  4. CLONIDINE [Concomitant]
     Indication: PRODUCT USED FOR UNKNOWN INDICATION
  5. ADVAIR DISKUS 100/50 [Concomitant]
     Indication: PRODUCT USED FOR UNKNOWN INDICATION
  6. HUMIRA [Suspect]
     Dates: start: 20101201
  7. SINGULAIR [Concomitant]
     Indication: PRODUCT USED FOR UNKNOWN INDICATION
  8. LISINOPRIL [Concomitant]
     Indication: PRODUCT USED FOR UNKNOWN INDICATION
  9. ASPIRIN [Concomitant]
     Indication: PRODUCT USED FOR UNKNOWN INDICATION
  10. GLUCOPHAGE [Concomitant]
     Indication: PRODUCT USED FOR UNKNOWN INDICATION
  11. HUMIRA [Suspect]
     Indication: PUSTULAR PSORIASIS
     Dates: start: 20100727
  12. VERAPAMIL [Concomitant]
     Indication: PRODUCT USED FOR UNKNOWN INDICATION
  13. ZOCOR [Concomitant]
     Indication: PRODUCT USED FOR UNKNOWN INDICATION
  14. LANTUS [Concomitant]
     Indication: PRODUCT USED FOR UNKNOWN INDICATION
  15. NEURONTIN [Concomitant]
     Dates: start: 20101027
  16. LASIX [Concomitant]
     Indication: PRODUCT USED FOR UNKNOWN INDICATION
  17. CUTAR [Concomitant]
     Indication: PRODUCT USED FOR UNKNOWN INDICATION
     Dosage: ROA 16 GD

REACTIONS (17)
  - SCAB [None]
  - PSORIASIS [None]
  - RASH GENERALISED [None]
  - SKIN BURNING SENSATION [None]
  - RASH [None]
  - PAIN IN EXTREMITY [None]
  - RASH MACULAR [None]
  - DRY SKIN [None]
  - ERYTHEMA [None]
  - SKIN EXFOLIATION [None]
  - TINEA PEDIS [None]
  - PRURITUS [None]
  - PUSTULAR PSORIASIS [None]
  - OEDEMA PERIPHERAL [None]
  - EXFOLIATIVE RASH [None]
  - RASH ERYTHEMATOUS [None]
  - HYPERKERATOSIS [None]
